FAERS Safety Report 6957077-9 (Version None)
Quarter: 2010Q3

REPORT INFORMATION
  Report Type: 
  Country: None (occurrence: None)
  Receive Date: 20100831
  Receipt Date: 20100823
  Transmission Date: 20110219
  Serious: Yes (Hospitalization, Other)
  Sender: FDA-Public Use
  Company Number: US-BIOGENIDEC-2010BI029221

PATIENT
  Age: 62 Year
  Sex: Female

DRUGS (2)
  1. TYSABRI [Suspect]
     Indication: MULTIPLE SCLEROSIS
     Route: 042
     Dates: start: 20070713, end: 20081009
  2. TYSABRI [Suspect]
     Route: 042
     Dates: start: 20090416

REACTIONS (5)
  - ATRIAL FIBRILLATION [None]
  - AUTONOMIC NEUROPATHY [None]
  - MULTIPLE SCLEROSIS RELAPSE [None]
  - SCOTOMA [None]
  - TRANSIENT ISCHAEMIC ATTACK [None]
